FAERS Safety Report 12388584 (Version 1)
Quarter: 2016Q2

REPORT INFORMATION
  Report Type: Spontaneous
  Country: US (occurrence: None)
  Receive Date: 20160519
  Receipt Date: 20160519
  Transmission Date: 20160815
  Serious: No
  Sender: FDA-Public Use
  Company Number: None

PATIENT
  Age: 44 Year
  Sex: Female

DRUGS (11)
  1. IODINE TINT [Concomitant]
  2. HYDROCO/APAP [Concomitant]
     Active Substance: ACETAMINOPHEN\HYDROCODONE
  3. GABAPENTIN. [Concomitant]
     Active Substance: GABAPENTIN
  4. IBRANCE [Suspect]
     Active Substance: PALBOCICLIB
     Indication: BREAST CANCER
     Dosage: 125MG QD1-21 THEN 7OFF ORAL
     Route: 048
     Dates: start: 20160413
  5. VITAMIN C [Concomitant]
     Active Substance: ASCORBIC ACID
  6. ZOLADEX IMP [Concomitant]
  7. CLINDAMYCIN [Concomitant]
     Active Substance: CLINDAMYCIN\CLINDAMYCIN PHOSPHATE
  8. UREA CRE 20% [Concomitant]
  9. AMOX/K CLAV [Concomitant]
     Active Substance: AMOXICILLIN\CLAVULANATE POTASSIUM
  10. LETROZOLE. [Concomitant]
     Active Substance: LETROZOLE
  11. DOXYCYCL HYC 100 MG GENERIC FOR VIBRA TAB 100 MG [Concomitant]
     Active Substance: DOXYCYCLINE HYCLATE

REACTIONS (4)
  - Skin infection [None]
  - Influenza like illness [None]
  - Nasopharyngitis [None]
  - Dyspnoea [None]

NARRATIVE: CASE EVENT DATE: 201604
